FAERS Safety Report 11065584 (Version 2)
Quarter: 2015Q2

REPORT INFORMATION
  Report Type: Spontaneous
  Country: US (occurrence: US)
  Receive Date: 20150425
  Receipt Date: 20150525
  Transmission Date: 20150821
  Serious: No
  Sender: FDA-Public Use
  Company Number: US-JNJFOC-20141107532

PATIENT
  Sex: Female
  Weight: 99.34 kg

DRUGS (8)
  1. STELARA [Suspect]
     Active Substance: USTEKINUMAB
     Indication: CROHN^S DISEASE
     Dosage: WEEK 0 AND 180 MG AT WEEK 2 AND THEN 90 MG EVERY WEEK THEREAFTER
     Route: 058
     Dates: start: 201307
  2. STELARA [Suspect]
     Active Substance: USTEKINUMAB
     Indication: PYODERMA GANGRENOSUM
     Dosage: 90 MG AT WEEK 0 AND 2 SUBCUTANEOUSLY AND THEN AT WEEK 8 AND THEN EVERY 8 WEEKS THEREAFTER
     Route: 058
     Dates: start: 201302
  3. STELARA [Suspect]
     Active Substance: USTEKINUMAB
     Indication: CROHN^S DISEASE
     Route: 058
     Dates: start: 201307
  4. STELARA [Suspect]
     Active Substance: USTEKINUMAB
     Indication: PYODERMA GANGRENOSUM
     Dosage: WEEK 0 AND 180 MG AT WEEK 2 AND THEN 90 MG EVERY WEEK THEREAFTER
     Route: 058
     Dates: start: 201307
  5. STELARA [Suspect]
     Active Substance: USTEKINUMAB
     Indication: CROHN^S DISEASE
     Dosage: 90 MG AT WEEK 0 AND 2 SUBCUTANEOUSLY AND THEN AT WEEK 8 AND THEN EVERY 8 WEEKS THEREAFTER
     Route: 058
     Dates: start: 201302
  6. STELARA [Suspect]
     Active Substance: USTEKINUMAB
     Indication: PYODERMA GANGRENOSUM
     Dosage: AT W 0 AND 2 WEEKS LATER 180 MG  IT WAS ORDERED 90 MG AT W4, EVERY 2 WEEKS .
     Route: 058
     Dates: start: 201408
  7. STELARA [Suspect]
     Active Substance: USTEKINUMAB
     Indication: CROHN^S DISEASE
     Dosage: AT W 0 AND 2 WEEKS LATER 180 MG  IT WAS ORDERED 90 MG AT W4, EVERY 2 WEEKS .
     Route: 058
     Dates: start: 201408
  8. STELARA [Suspect]
     Active Substance: USTEKINUMAB
     Indication: PYODERMA GANGRENOSUM
     Route: 058
     Dates: start: 201307

REACTIONS (3)
  - Drug dose omission [Unknown]
  - Off label use [Unknown]
  - Crohn^s disease [Not Recovered/Not Resolved]
